FAERS Safety Report 6401459-0 (Version None)
Quarter: 2009Q4

REPORT INFORMATION
  Report Type: 
  Country: None (occurrence: None)
  Receive Date: 20091015
  Receipt Date: 20091006
  Transmission Date: 20100525
  Serious: Yes (Other)
  Sender: FDA-Public Use
  Company Number: CL-BRISTOL-MYERS SQUIBB COMPANY-14688949

PATIENT
  Age: 61 Year
  Sex: Male

DRUGS (4)
  1. REYATAZ [Suspect]
     Indication: ANTIRETROVIRAL THERAPY
     Dosage: INTERRUPTED IN AUG 2009
     Dates: start: 20080501
  2. RITONAVIR [Suspect]
     Indication: ANTIRETROVIRAL THERAPY
     Dates: start: 20080501
  3. COMBIVIR [Suspect]
     Indication: ANTIRETROVIRAL THERAPY
     Dates: start: 20080501
  4. LOPINAVIR AND RITONAVIR [Suspect]
     Indication: ANTIRETROVIRAL THERAPY
     Dates: start: 20090801

REACTIONS (4)
  - ASCITES [None]
  - CONSTIPATION [None]
  - HEPATIC STEATOSIS [None]
  - LACTIC ACIDOSIS [None]
